FAERS Safety Report 23531651 (Version 1)
Quarter: 2024Q1

REPORT INFORMATION
  Report Type: Spontaneous
  Country: US (occurrence: US)
  Receive Date: 20240216
  Receipt Date: 20240216
  Transmission Date: 20240409
  Serious: No
  Sender: FDA-Public Use
  Company Number: None

PATIENT
  Age: 48 Year
  Sex: Female

DRUGS (4)
  1. ACETAMINOPHEN\OXYCODONE HYDROCHLORIDE [Suspect]
     Active Substance: ACETAMINOPHEN\OXYCODONE HYDROCHLORIDE
     Indication: Complex regional pain syndrome
  2. HYDROCODONE [Suspect]
     Active Substance: HYDROCODONE
     Indication: Complex regional pain syndrome
     Dosage: DOSE TAPERED
  3. HYDROCODONE [Suspect]
     Active Substance: HYDROCODONE
  4. GABAPENTIN [Concomitant]
     Active Substance: GABAPENTIN
     Indication: Complex regional pain syndrome

REACTIONS (1)
  - Drug withdrawal syndrome [Recovered/Resolved]
